FAERS Safety Report 7361281-8 (Version None)
Quarter: 2011Q1

REPORT INFORMATION
  Report Type: 
  Country: None (occurrence: None)
  Receive Date: 20110318
  Receipt Date: 20110310
  Transmission Date: 20110831
  Serious: Yes (Hospitalization)
  Sender: FDA-Public Use
  Company Number: A0865104A

PATIENT
  Age: 52 Year
  Sex: Female
  Weight: 80.5 kg

DRUGS (8)
  1. AVANDAMET [Suspect]
     Route: 048
     Dates: start: 20050301, end: 20050401
  2. AVANDARYL [Suspect]
     Route: 048
     Dates: start: 20070801, end: 20080301
  3. GLIPIZIDE [Concomitant]
  4. SYNTHROID [Concomitant]
  5. AVANDIA [Suspect]
     Dosage: 4MG TWICE PER DAY
     Dates: start: 20060201, end: 20070801
  6. MICARDIS [Concomitant]
  7. METFORMIN HCL [Concomitant]
  8. CRESTOR [Concomitant]

REACTIONS (3)
  - CEREBROVASCULAR ACCIDENT [None]
  - MYOCARDIAL INFARCTION [None]
  - CARDIAC FAILURE CONGESTIVE [None]
